FAERS Safety Report 8093717-1 (Version None)
Quarter: 2012Q1

REPORT INFORMATION
  Report Type: 
  Country: None (occurrence: None)
  Receive Date: 20120129
  Receipt Date: 20111024
  Transmission Date: 20120608
  Serious: No
  Sender: FDA-Public Use
  Company Number: US-ABBOTT-11P-163-0868830-00

PATIENT
  Sex: Female

DRUGS (5)
  1. HUMIRA [Suspect]
     Dosage: DAY 15
     Route: 058
  2. HYDROCODONE BITARTRATE [Concomitant]
     Indication: PRODUCT USED FOR UNKNOWN INDICATION
  3. PHENERGAN [Concomitant]
     Indication: PRODUCT USED FOR UNKNOWN INDICATION
  4. HUMIRA [Suspect]
     Indication: CROHN'S DISEASE
     Dosage: 1ST LOADING DOSE, ONCE
     Route: 058
  5. HUMIRA [Suspect]
     Route: 058

REACTIONS (3)
  - MUSCLE SPASMS [None]
  - NAUSEA [None]
  - FEELING ABNORMAL [None]
